FAERS Safety Report 25993385 (Version 1)
Quarter: 2025Q4

REPORT INFORMATION
  Report Type: Spontaneous
  Country: US (occurrence: US)
  Receive Date: 20251104
  Receipt Date: 20251104
  Transmission Date: 20260118
  Serious: Yes (Hospitalization, Other)
  Sender: PHARMOBEDIENT CONSULTING, LLC
  Company Number: US-Pharmobedient-000401

PATIENT
  Age: 18 Year
  Sex: Female
  Weight: 0 kg

DRUGS (12)
  1. VALPROATE SODIUM [Interacting]
     Active Substance: VALPROATE SODIUM
     Indication: Mental disorder
  2. CLOZAPINE [Interacting]
     Active Substance: CLOZAPINE
     Indication: Mental disorder
  3. ACETYLCYSTEINE [Concomitant]
     Active Substance: ACETYLCYSTEINE
     Indication: Mental disorder
  4. CLONIDINE [Concomitant]
     Active Substance: CLONIDINE
     Indication: Mental disorder
  5. OXCARBAZEPINE [Concomitant]
     Active Substance: OXCARBAZEPINE
     Indication: Mental disorder
  6. LORAZEPAM [Concomitant]
     Active Substance: LORAZEPAM
     Indication: Mental disorder
     Dosage: 1.5 MG EACH MORNING/1.5 MG MIDDAY
  7. FLUOXETINE [Concomitant]
     Active Substance: FLUOXETINE HYDROCHLORIDE
     Indication: Mental disorder
  8. HALOPERIDOL [Concomitant]
     Active Substance: HALOPERIDOL
     Indication: Mental disorder
  9. MELATONIN [Concomitant]
     Active Substance: MELATONIN
     Indication: Mental disorder
  10. LORAZEPAM [Concomitant]
     Active Substance: LORAZEPAM
     Indication: Mental disorder
  11. CLOZAPINE [Interacting]
     Active Substance: CLOZAPINE
     Indication: Mental disorder
  12. CLOZAPINE [Interacting]
     Active Substance: CLOZAPINE
     Indication: Mental disorder

REACTIONS (2)
  - Drug interaction [Unknown]
  - Myocarditis [Recovering/Resolving]
